FAERS Safety Report 24629736 (Version 1)
Quarter: 2024Q4

REPORT INFORMATION
  Report Type: Spontaneous
  Country: FR (occurrence: FR)
  Receive Date: 20241118
  Receipt Date: 20241118
  Transmission Date: 20250114
  Serious: Yes (Death, Hospitalization)
  Sender: SAMSUNG BIOEPIS
  Company Number: None

PATIENT
  Age: 56 Year
  Sex: Female
  Weight: 45.5 kg

DRUGS (5)
  1. ETANERCEPT [Suspect]
     Active Substance: ETANERCEPT
     Indication: Transplant rejection
     Dosage: 1FP/ UNKNOWN DOSE;
     Route: 042
     Dates: start: 20240318, end: 20240320
  2. PROGRAF [Suspect]
     Active Substance: TACROLIMUS
     Indication: Transplant rejection
     Dosage: TWICE A DAY;
     Route: 048
     Dates: start: 20200115
  3. MYCOPHENOLATE MOFETIL [Suspect]
     Active Substance: MYCOPHENOLATE MOFETIL
     Indication: Transplant rejection
     Dosage: 1FP/ 750 MG / 2 TIMES A DAY;
     Route: 048
     Dates: start: 20200115
  4. THYMOGLOBULINE [Suspect]
     Active Substance: LAPINE T-LYMPHOCYTE IMMUNE GLOBULIN
     Indication: Transplant rejection
     Dosage: 1FP/ 75 MG/ TOTAL;
     Route: 042
     Dates: start: 20240316, end: 20240318
  5. AMIODARONE [Suspect]
     Active Substance: AMIODARONE
     Indication: Torsade de pointes
     Dosage: 1FP/ 900 MG/D;
     Route: 042
     Dates: start: 20240404, end: 20240407

REACTIONS (4)
  - Progressive multifocal leukoencephalopathy [Fatal]
  - Infection [Fatal]
  - Interstitial lung disease [Not Recovered/Not Resolved]
  - Off label use [Unknown]

NARRATIVE: CASE EVENT DATE: 20240320
